FAERS Safety Report 5965679-1 (Version None)
Quarter: 2008Q4

REPORT INFORMATION
  Report Type: 
  Country: None (occurrence: None)
  Receive Date: 20081125
  Receipt Date: 20081118
  Transmission Date: 20090506
  Serious: Yes (Other)
  Sender: FDA-Public Use
  Company Number: A0736081C

PATIENT
  Age: 70 Year
  Sex: Female
  Weight: 71 kg

DRUGS (5)
  1. LAPATINIB [Suspect]
     Indication: COLORECTAL CANCER
     Dosage: 1000MG PER DAY
     Route: 048
     Dates: start: 20080620
  2. CAPECITABINE [Suspect]
     Indication: COLORECTAL CANCER
     Dosage: 2600MG CYCLIC
     Route: 048
     Dates: start: 20080620
  3. OXALIPLATIN [Suspect]
     Indication: COLORECTAL CANCER
     Dosage: 234MG SINGLE DOSE
     Route: 042
     Dates: start: 20080620
  4. APREPITANT [Concomitant]
     Dosage: 125MG SINGLE DOSE
     Route: 048
     Dates: start: 20080711, end: 20080711
  5. ONDANSETRON [Concomitant]
     Dosage: 24MG SINGLE DOSE
     Route: 048
     Dates: start: 20080711, end: 20080711

REACTIONS (1)
  - LARYNGEAL DISORDER [None]
